FAERS Safety Report 10204997 (Version 2)
Quarter: 2014Q2

REPORT INFORMATION
  Report Type: Spontaneous
  Country: US (occurrence: US)
  Receive Date: 20140529
  Receipt Date: 20140602
  Transmission Date: 20141212
  Serious: Yes (Hospitalization)
  Sender: FDA-Public Use
  Company Number: US-PERRIGO-14US005283

PATIENT
  Age: 53 Year
  Sex: Female

DRUGS (8)
  1. POTASSIUM CHLORIDE RX 10 MEQ (750MG) 5S7 [Suspect]
     Indication: MINERAL SUPPLEMENTATION
     Dosage: 40 MEQ, BID
     Route: 065
  2. LISINOPRIL [Suspect]
     Indication: HYPERTENSION
     Dosage: 10 MG, QD
     Route: 065
  3. SPIRONOLACTONE [Suspect]
     Indication: HYPERTENSION
     Dosage: 25 MG, BID
     Route: 065
  4. INSULIN 70/30 [Concomitant]
     Indication: DIABETES MELLITUS
     Dosage: 40 UNITS AM; 25 UNITS PM
     Route: 065
  5. FERROUS SULFATE [Concomitant]
     Indication: PRODUCT USED FOR UNKNOWN INDICATION
     Dosage: 325 MG, QD
     Route: 065
  6. SIMVASTATIN [Concomitant]
     Indication: PRODUCT USED FOR UNKNOWN INDICATION
     Dosage: 40 MG, QD
     Route: 065
  7. FUROSEMIDE [Concomitant]
     Indication: PRODUCT USED FOR UNKNOWN INDICATION
     Dosage: 40 MG, QD
     Route: 065
  8. DIGOXIN [Concomitant]
     Indication: PRODUCT USED FOR UNKNOWN INDICATION
     Dosage: 0.125 MG, QD
     Route: 065

REACTIONS (4)
  - Paralysis [Recovered/Resolved]
  - Atrioventricular block first degree [Recovered/Resolved]
  - Paraesthesia [Recovered/Resolved]
  - Hyperkalaemia [Recovered/Resolved]
